FAERS Safety Report 16778877 (Version 1)
Quarter: 2019Q3

REPORT INFORMATION
  Report Type: Other
  Country: JP (occurrence: JP)
  Receive Date: 20190906
  Receipt Date: 20190906
  Transmission Date: 20191005
  Serious: Yes (Death)
  Sender: FDA-Public Use
  Company Number: JP-AJANTA PHARMA USA INC.-2074092

PATIENT
  Age: 56 Year
  Sex: Male

DRUGS (1)
  1. VORICONAZOLE. [Suspect]
     Active Substance: VORICONAZOLE
     Indication: BRONCHOPULMONARY ASPERGILLOSIS

REACTIONS (4)
  - Photosensitivity reaction [Fatal]
  - Metastases to liver [Fatal]
  - Metastases to lymph nodes [Fatal]
  - Neuroendocrine carcinoma of the skin [Fatal]
